FAERS Safety Report 16563649 (Version 1)
Quarter: 2019Q3

REPORT INFORMATION
  Report Type: Spontaneous
  Country: PH (occurrence: PH)
  Receive Date: 20190712
  Receipt Date: 20190712
  Transmission Date: 20191004
  Serious: Yes (Death, Other)
  Sender: FDA-Public Use
  Company Number: PH-ASTELLAS-2019US028192

PATIENT
  Sex: Male

DRUGS (1)
  1. MYCAMINE [Suspect]
     Active Substance: MICAFUNGIN SODIUM
     Indication: SYSTEMIC CANDIDA
     Dosage: 100 MG, ONCE DAILY (EVERY 24 HOURS)
     Route: 042
     Dates: start: 20190706, end: 20190708

REACTIONS (3)
  - Pneumonia [Fatal]
  - Sepsis [Fatal]
  - Systemic candida [Fatal]
